FAERS Safety Report 9645649 (Version 2)
Quarter: 2013Q4

REPORT INFORMATION
  Report Type: Report from Study
  Country: CA (occurrence: CA)
  Receive Date: 20131025
  Receipt Date: 20131025
  Transmission Date: 20140711
  Serious: Yes (Hospitalization)
  Sender: FDA-Public Use
  Company Number: CA-JNJFOC-20121000685

PATIENT
  Age: 31 Year
  Sex: Female
  Weight: 63.5 kg

DRUGS (4)
  1. REMICADE [Suspect]
     Indication: CROHN^S DISEASE
     Route: 042
     Dates: start: 200810, end: 20130114
  2. REMICADE [Suspect]
     Indication: CROHN^S DISEASE
     Route: 042
     Dates: start: 2013
  3. REMICADE [Suspect]
     Indication: CROHN^S DISEASE
     Dosage: DURING PREGNANCY
     Route: 042
     Dates: start: 2005
  4. CHAMPIX [Suspect]
     Indication: EX-TOBACCO USER
     Route: 065

REACTIONS (4)
  - Hospitalisation [Unknown]
  - Exposure during pregnancy [Recovered/Resolved]
  - Urinary tract infection [Recovered/Resolved]
  - Weight decreased [Unknown]
